FAERS Safety Report 19481297 (Version 1)
Quarter: 2021Q3

REPORT INFORMATION
  Report Type: Spontaneous
  Country: JP (occurrence: JP)
  Receive Date: 20210701
  Receipt Date: 20210701
  Transmission Date: 20211014
  Serious: Yes (Hospitalization, Other)
  Sender: FDA-Public Use
  Company Number: JP-PFIZER INC-2021721064

PATIENT
  Age: 72 Year
  Sex: Male

DRUGS (7)
  1. GEMCITABINE HYDROCHLORIDE. [Suspect]
     Active Substance: GEMCITABINE HYDROCHLORIDE
     Indication: LUNG SQUAMOUS CELL CARCINOMA METASTATIC
     Dosage: UNSPECIFIED DOSE, EVERY 3 WEEKS, ON DAYS 1 AND 8
     Route: 042
  2. TILIDINE [Concomitant]
     Active Substance: TILIDINE
     Dosage: UNK
  3. CISPLATIN. [Suspect]
     Active Substance: CISPLATIN
     Indication: LUNG SQUAMOUS CELL CARCINOMA METASTATIC
     Dosage: UNSPECIFIED DOSE, EVERY 3 WEEKS, ON DAYS 1 AND 8
     Route: 042
  4. LOSARTAN. [Concomitant]
     Active Substance: LOSARTAN
     Dosage: UNK
  5. ATORVASTATIN [Concomitant]
     Active Substance: ATORVASTATIN
     Indication: MYOCARDIAL INFARCTION
     Dosage: UNK
  6. NECITUMUMAB [Suspect]
     Active Substance: NECITUMUMAB
     Indication: LUNG SQUAMOUS CELL CARCINOMA METASTATIC
     Dosage: UNSPECFIED DOSE, EVERY 3 WEEKS, ON DAYS 1 AND 8
     Route: 042
  7. ASPIRIN. [Concomitant]
     Active Substance: ASPIRIN
     Indication: MYOCARDIAL INFARCTION
     Dosage: UNK

REACTIONS (8)
  - Myelosuppression [Unknown]
  - Hypomagnesaemia [Recovered/Resolved]
  - Hypocalcaemia [Recovered/Resolved]
  - Rash [Unknown]
  - Anaemia [Unknown]
  - Hypokalaemia [Recovered/Resolved]
  - Diarrhoea [Recovered/Resolved]
  - Neutropenia [Unknown]
